FAERS Safety Report 16310584 (Version 2)
Quarter: 2021Q1

REPORT INFORMATION
  Report Type: Spontaneous
  Country: US (occurrence: US)
  Receive Date: 20190514
  Receipt Date: 20210226
  Transmission Date: 20210419
  Serious: Yes (Death, Other)
  Sender: FDA-Public Use
  Company Number: US-ASTRAZENECA-2019SE67490

PATIENT
  Age: 24648 Day
  Sex: Female
  Weight: 72.6 kg

DRUGS (67)
  1. NEXIUM [Suspect]
     Active Substance: ESOMEPRAZOLE MAGNESIUM
     Indication: GASTROOESOPHAGEAL REFLUX DISEASE
     Route: 048
     Dates: start: 2006, end: 2011
  2. PRILOSEC [Suspect]
     Active Substance: OMEPRAZOLE MAGNESIUM
     Indication: GASTROOESOPHAGEAL REFLUX DISEASE
     Dosage: GENERIC
     Route: 065
     Dates: end: 2017
  3. PREVACID [Suspect]
     Active Substance: LANSOPRAZOLE
     Indication: GASTROOESOPHAGEAL REFLUX DISEASE
     Route: 065
     Dates: end: 2006
  4. PROTONIX [Suspect]
     Active Substance: PANTOPRAZOLE SODIUM
     Indication: GASTROOESOPHAGEAL REFLUX DISEASE
     Route: 065
     Dates: end: 2006
  5. GABAPENTIN. [Concomitant]
     Active Substance: GABAPENTIN
     Indication: EPILEPSY
     Route: 065
     Dates: start: 2013, end: 2017
  6. TAMSULOSIN [Concomitant]
     Active Substance: TAMSULOSIN
     Route: 065
     Dates: start: 20161208
  7. DIPHENOXYLATE [Concomitant]
     Active Substance: DIPHENOXYLATE
  8. CEPHALEXIN. [Concomitant]
     Active Substance: CEPHALEXIN
     Route: 065
     Dates: start: 20160726
  9. VENTOLIN [Concomitant]
     Active Substance: ALBUTEROL SULFATE
  10. ALPHAGAN P [Concomitant]
     Active Substance: BRIMONIDINE TARTRATE
  11. AVAPRO [Concomitant]
     Active Substance: IRBESARTAN
  12. TRAVATAN [Concomitant]
     Active Substance: TRAVOPROST
  13. TRIAMCINOLONE [Concomitant]
     Active Substance: TRIAMCINOLONE
  14. PROTONIX [Suspect]
     Active Substance: PANTOPRAZOLE SODIUM
     Indication: GASTROOESOPHAGEAL REFLUX DISEASE
     Dosage: GENERIC
     Route: 065
     Dates: start: 2014, end: 2016
  15. PRAVASTATIN. [Concomitant]
     Active Substance: PRAVASTATIN
     Indication: LOW DENSITY LIPOPROTEIN ABNORMAL
     Route: 065
     Dates: start: 2013, end: 2017
  16. LATANOPROST. [Concomitant]
     Active Substance: LATANOPROST
  17. PRAVASTATIN. [Concomitant]
     Active Substance: PRAVASTATIN
  18. ISOSORBIDE. [Concomitant]
     Active Substance: ISOSORBIDE
     Route: 065
     Dates: start: 20161121
  19. BRIMONIDINE [Concomitant]
     Active Substance: BRIMONIDINE TARTRATE
  20. CIPROFLOXACIN. [Concomitant]
     Active Substance: CIPROFLOXACIN
  21. FERROUS SULFATE. [Concomitant]
     Active Substance: FERROUS SULFATE
  22. NIASPAN [Concomitant]
     Active Substance: NIACIN
  23. ACIPHEX [Concomitant]
     Active Substance: RABEPRAZOLE SODIUM
  24. TOPROL XL [Concomitant]
     Active Substance: METOPROLOL SUCCINATE
  25. VYTORIN [Concomitant]
     Active Substance: EZETIMIBE\SIMVASTATIN
  26. PREVACID [Suspect]
     Active Substance: LANSOPRAZOLE
     Indication: GASTROOESOPHAGEAL REFLUX DISEASE
     Route: 065
     Dates: start: 200605, end: 200606
  27. AMLODIPINE [Concomitant]
     Active Substance: AMLODIPINE BESYLATE
     Route: 065
     Dates: start: 20170109
  28. FLUTICASONE. [Concomitant]
     Active Substance: FLUTICASONE
  29. LABETALOL [Concomitant]
     Active Substance: LABETALOL\LABETALOL HYDROCHLORIDE
  30. PREDNISOLONE. [Concomitant]
     Active Substance: PREDNISOLONE
  31. TERBINAFINE. [Concomitant]
     Active Substance: TERBINAFINE
     Route: 065
     Dates: start: 20080229
  32. LIDOCAINE. [Concomitant]
     Active Substance: LIDOCAINE
  33. MIRAPEX [Concomitant]
     Active Substance: PRAMIPEXOLE DIHYDROCHLORIDE
  34. PRILOSEC [Suspect]
     Active Substance: OMEPRAZOLE MAGNESIUM
     Indication: GASTROOESOPHAGEAL REFLUX DISEASE
     Route: 048
     Dates: start: 200605, end: 200606
  35. REQUIP [Concomitant]
     Active Substance: ROPINIROLE HYDROCHLORIDE
     Indication: PARKINSON^S DISEASE
     Route: 065
     Dates: start: 20070918
  36. TRIAMTERENE. [Concomitant]
     Active Substance: TRIAMTERENE
  37. ZETIA [Concomitant]
     Active Substance: EZETIMIBE
  38. CYANOCOBALAMIN. [Concomitant]
     Active Substance: CYANOCOBALAMIN
  39. NEXIUM [Suspect]
     Active Substance: ESOMEPRAZOLE MAGNESIUM
     Indication: GASTROOESOPHAGEAL REFLUX DISEASE
     Route: 048
     Dates: start: 200605, end: 200606
  40. PRILOSEC [Suspect]
     Active Substance: OMEPRAZOLE MAGNESIUM
     Indication: GASTROOESOPHAGEAL REFLUX DISEASE
     Route: 048
     Dates: start: 2015, end: 2016
  41. PROTONIX [Suspect]
     Active Substance: PANTOPRAZOLE SODIUM
     Indication: GASTROOESOPHAGEAL REFLUX DISEASE
     Route: 065
     Dates: start: 200605, end: 200606
  42. OXYCODONE [Concomitant]
     Active Substance: OXYCODONE
     Indication: PAIN
     Route: 065
     Dates: start: 2013, end: 2017
  43. CETRIZINE [Concomitant]
     Active Substance: CETIRIZINE HYDROCHLORIDE
     Route: 065
     Dates: start: 20170109
  44. ROPINIROLE. [Concomitant]
     Active Substance: ROPINIROLE
     Route: 065
     Dates: start: 20160504
  45. CLONIDINE. [Concomitant]
     Active Substance: CLONIDINE
  46. NEXIUM [Suspect]
     Active Substance: ESOMEPRAZOLE MAGNESIUM
     Indication: GASTROOESOPHAGEAL REFLUX DISEASE
     Route: 048
     Dates: start: 20070622
  47. LEVOTHYROXINE. [Concomitant]
     Active Substance: LEVOTHYROXINE
  48. HUMALOG [Concomitant]
     Active Substance: INSULIN LISPRO
  49. CEFPODOXIME [Concomitant]
     Active Substance: CEFPODOXIME
  50. MAGNESIUM OXIDE. [Concomitant]
     Active Substance: MAGNESIUM OXIDE
  51. PRILOSEC [Suspect]
     Active Substance: OMEPRAZOLE MAGNESIUM
     Indication: GASTROOESOPHAGEAL REFLUX DISEASE
     Dosage: GENERIC
     Route: 065
     Dates: start: 20161018
  52. DORZOLAMIDE [Concomitant]
     Active Substance: DORZOLAMIDE
  53. SIMVASTATIN. [Concomitant]
     Active Substance: SIMVASTATIN
  54. METOPROLOL. [Concomitant]
     Active Substance: METOPROLOL
  55. NITROGLYCERINE [Concomitant]
     Active Substance: NITROGLYCERIN
  56. CYCLOBENZAPRINE. [Concomitant]
     Active Substance: CYCLOBENZAPRINE
  57. LOSARTAN. [Concomitant]
     Active Substance: LOSARTAN
  58. LIDODERM [Concomitant]
     Active Substance: LIDOCAINE
  59. KLOR?CON [Concomitant]
     Active Substance: POTASSIUM CHLORIDE
  60. NEXIUM [Suspect]
     Active Substance: ESOMEPRAZOLE MAGNESIUM
     Indication: GASTROOESOPHAGEAL REFLUX DISEASE
     Dosage: GENERIC
     Route: 065
     Dates: end: 2012
  61. FUROSEMIDE. [Concomitant]
     Active Substance: FUROSEMIDE
     Indication: OEDEMA
     Route: 065
     Dates: start: 2013, end: 2017
  62. SERTRALINE [Concomitant]
     Active Substance: SERTRALINE HYDROCHLORIDE
     Indication: DEPRESSION
     Route: 065
     Dates: start: 2007
  63. NITROFURANTOIN. [Concomitant]
     Active Substance: NITROFURANTOIN
  64. LISINOPRIL. [Concomitant]
     Active Substance: LISINOPRIL
  65. OXYCODONE [Concomitant]
     Active Substance: OXYCODONE
  66. TRAZODONE [Concomitant]
     Active Substance: TRAZODONE HYDROCHLORIDE
  67. HYDRALAZINE [Concomitant]
     Active Substance: HYDRALAZINE HYDROCHLORIDE

REACTIONS (7)
  - Nephrogenic anaemia [Unknown]
  - Acute kidney injury [Unknown]
  - End stage renal disease [Unknown]
  - Chronic kidney disease [Unknown]
  - Chronic kidney disease-mineral and bone disorder [Unknown]
  - Renal failure [Unknown]
  - Tubulointerstitial nephritis [Unknown]

NARRATIVE: CASE EVENT DATE: 20070419
